FAERS Safety Report 20616220 (Version 1)
Quarter: 2022Q1

REPORT INFORMATION
  Report Type: Spontaneous
  Country: CA (occurrence: CA)
  Receive Date: 20220321
  Receipt Date: 20220321
  Transmission Date: 20220423
  Serious: Yes (Hospitalization, Other)
  Sender: FDA-Public Use
  Company Number: CA-SA-SAC20220315000120

PATIENT
  Age: 72 Year
  Sex: Female

DRUGS (3)
  1. LANTUS [Suspect]
     Active Substance: INSULIN GLARGINE
     Indication: Product used for unknown indication
  2. INSULIN ASPART [Suspect]
     Active Substance: INSULIN ASPART
     Indication: Type 1 diabetes mellitus
  3. NOVORAPID [Suspect]
     Active Substance: INSULIN ASPART

REACTIONS (5)
  - Hepatic function abnormal [Unknown]
  - Illness [Unknown]
  - Immune system disorder [Unknown]
  - Renal impairment [Unknown]
  - Unevaluable event [Unknown]
